FAERS Safety Report 9468155 (Version 1)
Quarter: 2013Q3

REPORT INFORMATION
  Report Type: Spontaneous
  Country: BR (occurrence: BR)
  Receive Date: 20130821
  Receipt Date: 20130821
  Transmission Date: 20140515
  Serious: Yes (Hospitalization, Other)
  Sender: FDA-Public Use
  Company Number: BR-BIOMARINAP-BR-2013-101322

PATIENT
  Age: 4 Year
  Sex: Male
  Weight: 13.6 kg

DRUGS (5)
  1. ALDURAZYME [Suspect]
     Indication: MUCOPOLYSACCHARIDOSIS I
     Dosage: UNK
     Dates: start: 20100721
  2. ALDURAZYME [Suspect]
     Dosage: UNK
     Route: 042
     Dates: start: 20120910
  3. PROMETHAZINE HYDROCHLORIDE [Concomitant]
     Indication: PREMEDICATION
     Dosage: UNK
     Dates: start: 20120910
  4. DIPYRONE [Concomitant]
     Indication: PREMEDICATION
  5. PREDNISOLONE [Concomitant]
     Indication: PREMEDICATION

REACTIONS (8)
  - Urticaria papular [Recovered/Resolved]
  - Psychomotor hyperactivity [Recovered/Resolved]
  - Anaphylactic reaction [Recovered/Resolved]
  - Oxygen saturation decreased [Recovered/Resolved]
  - Cough [Recovered/Resolved]
  - Throat tightness [Recovered/Resolved]
  - Lip oedema [Recovered/Resolved]
  - Headache [Recovered/Resolved]
